FAERS Safety Report 19754624 (Version 1)
Quarter: 2021Q3

REPORT INFORMATION
  Report Type: Spontaneous
  Country: US (occurrence: US)
  Receive Date: 20210824
  Receipt Date: 20210824
  Transmission Date: 20211014
  Serious: No
  Sender: FDA-Public Use
  Company Number: None

PATIENT

DRUGS (2)
  1. MEMANTINE HCL [Suspect]
     Active Substance: MEMANTINE
     Route: 048
  2. MELATONIN [Suspect]
     Active Substance: MELATONIN
     Route: 048

REACTIONS (2)
  - Product label confusion [None]
  - Product packaging confusion [None]
